FAERS Safety Report 18271358 (Version 1)
Quarter: 2020Q3

REPORT INFORMATION
  Report Type: Spontaneous
  Country: DK (occurrence: DK)
  Receive Date: 20200916
  Receipt Date: 20200916
  Transmission Date: 20201103
  Serious: Yes (Other)
  Sender: FDA-Public Use
  Company Number: DK-AUROBINDO-AUR-APL-2017-38190

PATIENT
  Age: 37 Year
  Sex: Female

DRUGS (3)
  1. APYDAN [OXCARBAZEPINE] [Suspect]
     Active Substance: OXCARBAZEPINE
     Indication: EPILEPSY
     Dosage: 1.5 DOSAGE FORM, MORNING AND EVENING
     Route: 065
     Dates: start: 20000101
  2. APYDAN [OXCARBAZEPINE] [Suspect]
     Active Substance: OXCARBAZEPINE
     Dosage: 1800 MILLIGRAM, ONCE A DAY
     Route: 048
     Dates: start: 20000101
  3. LAMOTRIGINE. [Suspect]
     Active Substance: LAMOTRIGINE
     Indication: EPILEPSY
     Dosage: 1.5 DOSAGE FORM, MORNING AND EVENING
     Route: 048
     Dates: start: 20000101

REACTIONS (5)
  - Vision blurred [Not Recovered/Not Resolved]
  - Visual impairment [Unknown]
  - Cataract subcapsular [Not Recovered/Not Resolved]
  - Astigmatism [Not Recovered/Not Resolved]
  - Cataract [Unknown]

NARRATIVE: CASE EVENT DATE: 20170401
